FAERS Safety Report 24577404 (Version 1)
Quarter: 2024Q4

REPORT INFORMATION
  Report Type: Spontaneous
  Country: US (occurrence: US)
  Receive Date: 20241104
  Receipt Date: 20241104
  Transmission Date: 20250114
  Serious: No
  Sender: PERRIGO
  Company Number: US-PERRIGO-24US003383

PATIENT
  Age: 68 Year
  Sex: Female
  Weight: 68.027 kg

DRUGS (15)
  1. POLYETHYLENE GLYCOL 3350 [Suspect]
     Active Substance: POLYETHYLENE GLYCOL 3350
     Indication: Constipation
     Dosage: 8 G TO 17 G, QD
     Route: 048
     Dates: start: 20101105
  2. CALCIUM [Concomitant]
     Active Substance: CALCIUM
     Indication: Osteoporosis
     Dosage: UNK
     Route: 065
  3. VITAMINS NOS [Concomitant]
     Active Substance: VITAMINS
     Indication: Supplementation therapy
     Dosage: UNK
     Route: 065
     Dates: start: 2000
  4. VITAMIN D NOS [Concomitant]
     Active Substance: CHOLECALCIFEROL\ERGOCALCIFEROL
     Indication: Multiple sclerosis
     Dosage: 2000 IU, UNKNOWN
     Route: 065
     Dates: start: 2004
  5. VITAMIN B12 [Concomitant]
     Active Substance: CYANOCOBALAMIN
     Indication: Asthenia
     Dosage: 1000 MCG, UNKNOWN
     Route: 065
     Dates: start: 2023
  6. VITAMIN B12 [Concomitant]
     Active Substance: CYANOCOBALAMIN
     Indication: Supplementation therapy
  7. VITAMIN C [Concomitant]
     Active Substance: ASCORBIC ACID
     Indication: Nasopharyngitis
     Dosage: 500 MG, UNKNOWN
     Route: 065
     Dates: start: 20240315, end: 20240402
  8. MINERALS\VITAMINS [Concomitant]
     Active Substance: MINERALS\VITAMINS
     Indication: Macular degeneration
     Dosage: UNK
     Route: 065
  9. MINERALS\VITAMINS [Concomitant]
     Active Substance: MINERALS\VITAMINS
     Indication: Macular degeneration
     Dosage: UNK
     Route: 065
     Dates: start: 2023
  10. TYLENOL [Concomitant]
     Active Substance: ACETAMINOPHEN
     Indication: Arthritis
     Dosage: 500 MG, BID PRN
     Route: 065
  11. GABAPENTIN [Concomitant]
     Active Substance: GABAPENTIN
     Indication: Macular degeneration
     Dosage: 300 MG, TID
     Route: 065
     Dates: end: 2024
  12. GABAPENTIN [Concomitant]
     Active Substance: GABAPENTIN
     Dosage: 100 MG TO 300 MG, UNKNOWN
     Route: 065
     Dates: end: 2024
  13. GABAPENTIN [Concomitant]
     Active Substance: GABAPENTIN
     Dosage: 300 MG, BID TO TID
     Route: 065
  14. TIZANIDINE [Concomitant]
     Active Substance: TIZANIDINE
     Indication: Muscle spasms
     Dosage: 2 MG TO 4 MG, UNKNOWN
     Route: 065
  15. DULOXETINE [Concomitant]
     Active Substance: DULOXETINE
     Indication: Anxiety
     Dosage: UNK
     Route: 065
     Dates: start: 202401

REACTIONS (2)
  - Incorrect product administration duration [Not Recovered/Not Resolved]
  - Underdose [Not Recovered/Not Resolved]

NARRATIVE: CASE EVENT DATE: 20101105
